FAERS Safety Report 6979037-4 (Version None)
Quarter: 2010Q3

REPORT INFORMATION
  Report Type: 
  Country: None (occurrence: None)
  Receive Date: 20100908
  Receipt Date: 20100831
  Transmission Date: 20110219
  Serious: Yes (Death, Other)
  Sender: FDA-Public Use
  Company Number: 2010US003533

PATIENT
  Age: 46 Year
  Sex: Male

DRUGS (3)
  1. PROGRAF [Suspect]
     Indication: GRAFT VERSUS HOST DISEASE
  2. PROGRAF [Suspect]
     Indication: RENAL TRANSPLANT
  3. PREDNISONE [Concomitant]

REACTIONS (8)
  - CYTOMEGALOVIRUS VIRAEMIA [None]
  - FAILURE TO THRIVE [None]
  - GASTROENTERITIS CLOSTRIDIAL [None]
  - INCISION SITE ABSCESS [None]
  - METASTASES TO LIVER [None]
  - METASTASES TO LUNG [None]
  - METASTASES TO SPINE [None]
  - TONGUE CANCER METASTATIC [None]
